FAERS Safety Report 15004530 (Version 1)
Quarter: 2018Q2

REPORT INFORMATION
  Report Type: Spontaneous
  Country: US (occurrence: US)
  Receive Date: 20180524
  Receipt Date: 20180524
  Transmission Date: 20180711
  Serious: Yes (Hospitalization)
  Sender: FDA-Public Use
  Company Number: None

PATIENT
  Sex: Female

DRUGS (19)
  1. DULOXETINE. [Concomitant]
     Active Substance: DULOXETINE
  2. MELATONIN [Concomitant]
     Active Substance: MELATONIN
  3. ENBREL [Suspect]
     Active Substance: ETANERCEPT
     Indication: PRODUCT USED FOR UNKNOWN INDICATION
     Route: 058
     Dates: start: 20170714
  4. GABAPENTIN. [Concomitant]
     Active Substance: GABAPENTIN
  5. MOBIC [Concomitant]
     Active Substance: MELOXICAM
  6. XANAX [Concomitant]
     Active Substance: ALPRAZOLAM
  7. VICODIN [Concomitant]
     Active Substance: ACETAMINOPHEN\HYDROCODONE BITARTRATE
  8. METHOTREXATE. [Concomitant]
     Active Substance: METHOTREXATE
  9. PREDNISONE. [Concomitant]
     Active Substance: PREDNISONE
  10. TOPAMAX [Concomitant]
     Active Substance: TOPIRAMATE
  11. VITAMIN B12 [Concomitant]
     Active Substance: CYANOCOBALAMIN
  12. CELEREX [Concomitant]
  13. OXYCODONE [Concomitant]
     Active Substance: OXYCODONE
  14. FENTANYL. [Concomitant]
     Active Substance: FENTANYL
  15. HYDROXYCHLOR [Concomitant]
     Active Substance: HYDROXYCHLOROQUINE
  16. ADVAIR HFA [Concomitant]
     Active Substance: FLUTICASONE PROPIONATE\SALMETEROL XINAFOATE
  17. DOXEPIN [Concomitant]
     Active Substance: DOXEPIN
  18. LISINOPRIL. [Concomitant]
     Active Substance: LISINOPRIL
  19. TIZANIDINE. [Concomitant]
     Active Substance: TIZANIDINE

REACTIONS (1)
  - Drug interaction [None]
